FAERS Safety Report 5218365-X (Version None)
Quarter: 2007Q1

REPORT INFORMATION
  Report Type: 
  Country: None (occurrence: None)
  Receive Date: 20070124
  Receipt Date: 20070112
  Transmission Date: 20070707
  Serious: Yes (Other)
  Sender: FDA-Public Use
  Company Number: US-PFIZER INC-2007004463

PATIENT
  Sex: Female
  Weight: 54.4 kg

DRUGS (1)
  1. DEPO-PROVERA [Suspect]
     Indication: CONTRACEPTION
     Dosage: FREQ:SINGLE INJECTION
     Dates: start: 20060912, end: 20060912

REACTIONS (2)
  - LOSS OF CONSCIOUSNESS [None]
  - UTERINE HAEMORRHAGE [None]
